FAERS Safety Report 8056813-0 (Version None)
Quarter: 2012Q1

REPORT INFORMATION
  Report Type: 
  Country: None (occurrence: None)
  Receive Date: 20120119
  Receipt Date: 20120111
  Transmission Date: 20120608
  Serious: Yes (Life-Threatening)
  Sender: FDA-Public Use
  Company Number: JP-GLAXOSMITHKLINE-B0771573A

PATIENT
  Sex: Female

DRUGS (6)
  1. TRACLEER [Concomitant]
     Indication: PULMONARY ARTERIAL HYPERTENSION
     Dosage: 250MG PER DAY
     Route: 048
     Dates: start: 20100222
  2. FUROSEMIDE [Concomitant]
     Indication: PULMONARY ARTERIAL HYPERTENSION
     Route: 048
     Dates: start: 20091111, end: 20111204
  3. RABEPRAZOLE SODIUM [Concomitant]
     Indication: GASTROOESOPHAGEAL REFLUX DISEASE
     Dosage: 10MG PER DAY
     Route: 048
     Dates: start: 20100726
  4. ADCIRCA [Concomitant]
     Indication: PULMONARY ARTERIAL HYPERTENSION
     Dosage: 40MG PER DAY
     Route: 048
     Dates: start: 20100913
  5. FLOLAN [Suspect]
     Indication: PULMONARY ARTERIAL HYPERTENSION
     Route: 042
     Dates: start: 20110119
  6. ALDACTONE [Concomitant]
     Indication: PULMONARY ARTERIAL HYPERTENSION
     Dosage: 50MG PER DAY
     Route: 048
     Dates: start: 20110307

REACTIONS (15)
  - VOMITING [None]
  - TRI-IODOTHYRONINE FREE INCREASED [None]
  - CARDIAC FAILURE [None]
  - HYPERTHYROIDISM [None]
  - PULMONARY HYPERTENSION [None]
  - CARDIOMEGALY [None]
  - ANTI-THYROID ANTIBODY POSITIVE [None]
  - RIGHT VENTRICULAR FAILURE [None]
  - BLOOD THYROID STIMULATING HORMONE DECREASED [None]
  - TACHYCARDIA [None]
  - GOITRE [None]
  - NAUSEA [None]
  - BASEDOW'S DISEASE [None]
  - WEIGHT INCREASED [None]
  - THYROXINE FREE INCREASED [None]
